FAERS Safety Report 14794082 (Version 1)
Quarter: 2018Q2

REPORT INFORMATION
  Report Type: Spontaneous
  Country: US (occurrence: US)
  Receive Date: 20180423
  Receipt Date: 20180423
  Transmission Date: 20180711
  Serious: Yes (Other)
  Sender: FDA-Public Use
  Company Number: US-SA-2018SA113828

PATIENT
  Age: 64 Year
  Sex: Male

DRUGS (6)
  1. PRALUENT [Suspect]
     Active Substance: ALIROCUMAB
     Indication: PRODUCT USED FOR UNKNOWN INDICATION
     Route: 058
     Dates: start: 20170201
  2. ALIROCUMAB PREFILLED PEN [Suspect]
     Active Substance: ALIROCUMAB
     Indication: PRODUCT USED FOR UNKNOWN INDICATION
     Dates: start: 20170201
  3. ASPIRIN. [Concomitant]
     Active Substance: ASPIRIN
  4. VENTOLIN [Concomitant]
     Active Substance: ALBUTEROL SULFATE
  5. CELEBREX [Concomitant]
     Active Substance: CELECOXIB
  6. PLETAL [Concomitant]
     Active Substance: CILOSTAZOL

REACTIONS (1)
  - Catheterisation cardiac [Unknown]

NARRATIVE: CASE EVENT DATE: 20180410
